FAERS Safety Report 9455341 (Version 1)
Quarter: 2013Q3

REPORT INFORMATION
  Report Type: Report from Study
  Country: DE (occurrence: DE)
  Receive Date: 20130813
  Receipt Date: 20130813
  Transmission Date: 20140515
  Serious: Yes (Other)
  Sender: FDA-Public Use
  Company Number: PHHY2013DE086589

PATIENT
  Sex: Female
  Weight: 76 kg

DRUGS (4)
  1. AMN107 [Suspect]
     Indication: CHRONIC MYELOID LEUKAEMIA
     Dosage: 600 MG, DAILY
     Route: 048
     Dates: start: 20120109
  2. AMN107 [Suspect]
     Dosage: 450 MG, DAILY
     Route: 048
     Dates: start: 20121002
  3. AMN107 [Suspect]
     Dosage: 300 MG, DAILY
     Route: 048
     Dates: start: 20121219, end: 20130415
  4. AMN107 [Suspect]
     Dosage: 150 MG, DAILY
     Route: 048
     Dates: start: 20120416, end: 20130510

REACTIONS (2)
  - Myopathy [Recovered/Resolved]
  - Toxic neuropathy [Not Recovered/Not Resolved]
